APPROVED DRUG PRODUCT: ACETAMINOPHEN AND CODEINE PHOSPHATE
Active Ingredient: ACETAMINOPHEN; CODEINE PHOSPHATE
Strength: 300MG;30MG
Dosage Form/Route: TABLET;ORAL
Application: A040779 | Product #001 | TE Code: AA
Applicant: AMNEAL PHARMACEUTICALS NY LLC
Approved: May 29, 2008 | RLD: No | RS: No | Type: RX